FAERS Safety Report 12425069 (Version 1)
Quarter: 2016Q2

REPORT INFORMATION
  Report Type: Spontaneous
  Country: CO (occurrence: CO)
  Receive Date: 20160601
  Receipt Date: 20160601
  Transmission Date: 20160815
  Serious: Yes (Hospitalization, Other)
  Sender: FDA-Public Use
  Company Number: CO-PFIZER INC-2016281901

PATIENT
  Age: 56 Year
  Sex: Female

DRUGS (4)
  1. FOLIC ACID. [Concomitant]
     Active Substance: FOLIC ACID
  2. SULFASALASIN [Concomitant]
  3. PREDNISOLONA [Concomitant]
     Active Substance: PREDNISOLONE
  4. METHOTREXATE [Suspect]
     Active Substance: METHOTREXATE
     Indication: RHEUMATOID ARTHRITIS
     Dosage: 6 DF, WEEKLY (EVERY 8 DAYS)
     Route: 048
     Dates: start: 2012

REACTIONS (4)
  - Ulcerative keratitis [Recovering/Resolving]
  - Peripheral swelling [Recovering/Resolving]
  - Arthritis [Recovering/Resolving]
  - Coma [Recovering/Resolving]

NARRATIVE: CASE EVENT DATE: 20160516
